FAERS Safety Report 16509851 (Version 2)
Quarter: 2020Q2

REPORT INFORMATION
  Report Type: Spontaneous
  Country: SK (occurrence: SK)
  Receive Date: 20190701
  Receipt Date: 20200629
  Transmission Date: 20200713
  Serious: Yes (Death, Other)
  Sender: FDA-Public Use
  Company Number: SK-BRISTOL-MYERS SQUIBB COMPANY-BMS-2019-060823

PATIENT
  Age: 85 Year
  Sex: Female

DRUGS (7)
  1. MILGAMMA [BENFOTIAMINE;CYANOCOBALAMIN] [Concomitant]
     Active Substance: BENFOTIAMINE\CYANOCOBALAMIN
     Indication: PRODUCT USED FOR UNKNOWN INDICATION
     Dosage: 1 DOSAGE FORM, QD
     Route: 048
  2. ASCORUTIN [Concomitant]
     Active Substance: ASCORBIC ACID\RUTIN
     Indication: PRODUCT USED FOR UNKNOWN INDICATION
     Dosage: 1 DOSAGE FORM, QD
     Route: 048
  3. WARFARIN SODIUM. [Suspect]
     Active Substance: WARFARIN SODIUM
     Indication: VENOUS THROMBOSIS
     Dosage: 3 MILLIGRAM, QD
     Route: 048
     Dates: start: 20170904, end: 20190329
  4. PRENESSA [Concomitant]
     Active Substance: PERINDOPRIL
     Indication: HYPERTENSION
     Dosage: 4 MILLIGRAM, QD
     Route: 048
     Dates: start: 2016, end: 2019
  5. VEROGALID [Concomitant]
     Indication: HYPERTENSION
     Dosage: 120 MILLIGRAM, BID
     Route: 048
  6. DETRALEX [Concomitant]
     Active Substance: DIOSMIN\HESPERIDIN
     Indication: PRODUCT USED FOR UNKNOWN INDICATION
     Dosage: 1 DOSAGE FORM, BID
     Route: 048
  7. CORVATON [Concomitant]
     Active Substance: MOLSIDOMINE
     Indication: PRODUCT USED FOR UNKNOWN INDICATION
     Dosage: 2 MILLIGRAM, BID
     Route: 048

REACTIONS (4)
  - Anticoagulation drug level above therapeutic [Fatal]
  - Haemorrhage subcutaneous [Fatal]
  - Melaena [Fatal]
  - Hypocoagulable state [Fatal]

NARRATIVE: CASE EVENT DATE: 20190329
